FAERS Safety Report 7702210-4 (Version None)
Quarter: 2011Q3

REPORT INFORMATION
  Report Type: 
  Country: None (occurrence: None)
  Receive Date: 20110822
  Receipt Date: 20110809
  Transmission Date: 20111222
  Serious: Yes (Hospitalization, Other)
  Sender: FDA-Public Use
  Company Number: GB-MYLANLABS-2011S1017005

PATIENT
  Age: 72 Year
  Sex: Male

DRUGS (2)
  1. FLOXACILLIN SODIUM [Concomitant]
     Indication: LYMPHADENOPATHY
  2. TERBINAFINE HCL [Suspect]
     Indication: ONYCHOMYCOSIS

REACTIONS (6)
  - MALAISE [None]
  - ACUTE GENERALISED EXANTHEMATOUS PUSTULOSIS [None]
  - LEUKOCYTOSIS [None]
  - POST INFLAMMATORY PIGMENTATION CHANGE [None]
  - NEUTROPHILIA [None]
  - PUSTULAR PSORIASIS [None]
